FAERS Safety Report 9976264 (Version 1)
Quarter: 2014Q1

REPORT INFORMATION
  Report Type: Report from Study
  Country: US (occurrence: US)
  Receive Date: 20140306
  Receipt Date: 20140306
  Transmission Date: 20141002
  Serious: No
  Sender: FDA-Public Use
  Company Number: US-ABBVIE-13P-163-1165566-00

PATIENT
  Age: 38 Year
  Sex: Female

DRUGS (5)
  1. HUMIRA [Suspect]
     Indication: CROHN^S DISEASE
     Dates: start: 20130816
  2. IMURAN [Concomitant]
     Indication: CROHN^S DISEASE
  3. ENTOCORT [Concomitant]
     Indication: CROHN^S DISEASE
     Dosage: 3 MG DAILY
  4. METAMIZOL [Concomitant]
     Indication: CROHN^S DISEASE
     Dosage: 250 MG DAILY
  5. AZYTHROMYCIN [Concomitant]
     Indication: CROHN^S DISEASE
     Dosage: 500 MG DAILY

REACTIONS (1)
  - Injection site haemorrhage [Recovered/Resolved]
